FAERS Safety Report 8325070-X (Version None)
Quarter: 2012Q2

REPORT INFORMATION
  Report Type: 
  Country: None (occurrence: None)
  Receive Date: 20120501
  Receipt Date: 20120423
  Transmission Date: 20120825
  Serious: Yes (Hospitalization, Other)
  Sender: FDA-Public Use
  Company Number: PHEH2012US008250

PATIENT
  Sex: Male
  Weight: 56.508 kg

DRUGS (3)
  1. GILENYA [Suspect]
     Indication: MULTIPLE SCLEROSIS
     Dosage: 0.5 MG, QD
     Route: 048
     Dates: start: 20110929, end: 20120416
  2. CYMBALTA [Concomitant]
     Dosage: 60 MG, DAILY
     Route: 048
  3. ARVAN [Concomitant]
     Route: 048

REACTIONS (4)
  - TEMPORAL ARTERITIS [None]
  - HEADACHE [None]
  - PYREXIA [None]
  - RED BLOOD CELL SEDIMENTATION RATE INCREASED [None]
